FAERS Safety Report 7269782-8 (Version None)
Quarter: 2011Q1

REPORT INFORMATION
  Report Type: 
  Country: None (occurrence: None)
  Receive Date: 20110124
  Receipt Date: 20110112
  Transmission Date: 20110831
  Serious: Yes (Hospitalization)
  Sender: FDA-Public Use
  Company Number: LEO-2011-00045

PATIENT
  Age: 68 Year
  Sex: Female

DRUGS (2)
  1. INNOHEP [Suspect]
     Indication: VARICOSE VEIN OPERATION
     Dosage: 3500 IU (3500 IU, 1 N 1 D), SUBCUTANEOUS
     Route: 058
     Dates: start: 20101203, end: 20101211
  2. INNOHEP [Suspect]
     Indication: THROMBOSIS PROPHYLAXIS
     Dosage: 3500 IU (3500 IU, 1 N 1 D), SUBCUTANEOUS
     Route: 058
     Dates: start: 20101203, end: 20101211

REACTIONS (2)
  - DRUG INEFFECTIVE [None]
  - PULMONARY EMBOLISM [None]
